FAERS Safety Report 21330864 (Version 1)
Quarter: 2022Q3

REPORT INFORMATION
  Report Type: Spontaneous
  Country: US (occurrence: US)
  Receive Date: 20220914
  Receipt Date: 20220914
  Transmission Date: 20221027
  Serious: No
  Sender: FDA-Public Use
  Company Number: US-SA-SAC20220912001499

PATIENT
  Sex: Female
  Weight: 58.957 kg

DRUGS (9)
  1. DUPIXENT [Suspect]
     Active Substance: DUPILUMAB
     Dosage: UNK
  2. AZELASTINE [Concomitant]
     Active Substance: AZELASTINE
     Dosage: 1 DROP INTO BOTH EYES TWICE A DAY
  3. CLINDAMYCIN HYDROCHLORIDE [Concomitant]
     Active Substance: CLINDAMYCIN HYDROCHLORIDE
     Dosage: UNK UNK, TID
  4. PREDNISONE [Concomitant]
     Active Substance: PREDNISONE
  5. MUPIROCIN [Concomitant]
     Active Substance: MUPIROCIN
  6. FLUCONAZOLE [Concomitant]
     Active Substance: FLUCONAZOLE
     Dosage: UNK UNK, QD
  7. DIFLUCAN [Concomitant]
     Active Substance: FLUCONAZOLE
     Route: 048
  8. ZYRTEC [Concomitant]
     Active Substance: CETIRIZINE HYDROCHLORIDE
  9. TYLENOL [Concomitant]
     Active Substance: ACETAMINOPHEN

REACTIONS (4)
  - Chronic rhinosinusitis with nasal polyps [Unknown]
  - Chronic sinusitis [Unknown]
  - Nasal turbinate hypertrophy [Unknown]
  - Nasal septum deviation [Unknown]
